FAERS Safety Report 8505765-5 (Version None)
Quarter: 2012Q2

REPORT INFORMATION
  Report Type: 
  Country: None (occurrence: None)
  Receive Date: 20120629
  Receipt Date: 20120621
  Transmission Date: 20120825
  Serious: Yes (Hospitalization)
  Sender: FDA-Public Use
  Company Number: WAES 1206USA02182

PATIENT
  Age: 25 Year
  Sex: Female

DRUGS (8)
  1. ISENTRESS [Suspect]
     Dosage: 80 MG/DAILY/PO
     Route: 048
     Dates: start: 20100713, end: 20111108
  2. COMBIVIR [Suspect]
     Dosage: 2 TAB/DAILY/PO
     Route: 048
     Dates: start: 20120319
  3. NORVIR [Suspect]
     Dosage: 100 MG/DAILY/PO
     Route: 048
     Dates: start: 20100713, end: 20111108
  4. KALETRA [Suspect]
     Dosage: 2 TAB/DAILY/PO
     Route: 048
     Dates: start: 20120305, end: 20120312
  5. TRUVADA [Suspect]
     Dosage: 1 TAB/DAILY/PO
     Route: 048
     Dates: start: 20100713, end: 20111108
  6. EPZICOM [Suspect]
     Dosage: 1 TAB/DAILY/PO
     Route: 048
     Dates: start: 20120305, end: 20120312
  7. SELZENTRY [Suspect]
     Dosage: 300 MG/DAILY/PO
     Route: 048
     Dates: start: 20100713, end: 20111108
  8. PREZISTA [Suspect]
     Dosage: 800 MG/DAILY/PO
     Route: 048
     Dates: start: 20100713, end: 20111108

REACTIONS (2)
  - MATERNAL EXPOSURE DURING PREGNANCY [None]
  - CYTOLYTIC HEPATITIS [None]
